FAERS Safety Report 9777948 (Version 3)
Quarter: 2014Q2

REPORT INFORMATION
  Report Type: Report from Study
  Country: US (occurrence: US)
  Receive Date: 20131223
  Receipt Date: 20140410
  Transmission Date: 20141212
  Serious: Yes (Hospitalization)
  Sender: FDA-Public Use
  Company Number: US-BRISTOL-MYERS SQUIBB COMPANY-19611532

PATIENT
  Age: 51 Year
  Sex: Female

DRUGS (1)
  1. IPILIMUMAB [Suspect]
     Indication: MALIGNANT MELANOMA
     Dosage: 4CYCLES COMPLETED,3CYCLE SKIPPED,1CYCLE:16JUL2013,2CYCLE-09AUG2013,CYCLE4-20SEP2013.
     Dates: start: 20130716

REACTIONS (4)
  - Adrenal insufficiency [Recovering/Resolving]
  - Vomiting [Recovering/Resolving]
  - Hypophysitis [Recovering/Resolving]
  - Hypothyroidism [Recovering/Resolving]
